FAERS Safety Report 18195876 (Version 3)
Quarter: 2021Q1

REPORT INFORMATION
  Report Type: Report from Study
  Country: None (occurrence: JP)
  Receive Date: 20200826
  Receipt Date: 20210308
  Transmission Date: 20210419
  Serious: Yes (Hospitalization)
  Sender: FDA-Public Use
  Company Number: JP-ABBVIE-19K-087-2953316-00

PATIENT
  Age: 74 Year
  Sex: Male
  Weight: 52 kg

DRUGS (33)
  1. DUODOPA [Suspect]
     Active Substance: CARBIDOPA\LEVODOPA
     Dosage: MD: 6.0 ML?CD: 2.4 ML/HR X 16 HRS?ED: 2.0 ML/UNIT X 2
     Route: 050
     Dates: start: 20190726, end: 20190726
  2. DUODOPA [Suspect]
     Active Substance: CARBIDOPA\LEVODOPA
     Dosage: MD: 9.0 ML?CD: 2.6 ML/HR X 16 HRS?ED: 1.7 ML/UNIT X 2
     Route: 050
     Dates: start: 20190822, end: 20190902
  3. SUVOREXANT. [Concomitant]
     Active Substance: SUVOREXANT
     Indication: PRODUCT USED FOR UNKNOWN INDICATION
     Route: 048
  4. SILODOSIN. [Concomitant]
     Active Substance: SILODOSIN
     Indication: PRODUCT USED FOR UNKNOWN INDICATION
     Route: 048
     Dates: start: 20190730
  5. DUODOPA [Suspect]
     Active Substance: CARBIDOPA\LEVODOPA
     Dosage: MD: 6.0 ML?CD: 2.2 ML/HR X 16 HRS?ED: 2.0 ML/UNIT X 2
     Route: 050
     Dates: start: 20190729, end: 20190805
  6. CLONAZEPAM. [Concomitant]
     Active Substance: CLONAZEPAM
     Indication: PRODUCT USED FOR UNKNOWN INDICATION
     Route: 048
  7. DOMPERIDONE [Concomitant]
     Active Substance: DOMPERIDONE
     Indication: PRODUCT USED FOR UNKNOWN INDICATION
     Route: 048
     Dates: end: 20191016
  8. LUBIPROSTONE [Concomitant]
     Active Substance: LUBIPROSTONE
     Indication: PRODUCT USED FOR UNKNOWN INDICATION
     Route: 048
  9. DUODOPA [Suspect]
     Active Substance: CARBIDOPA\LEVODOPA
     Dosage: MD: 9.0 ML?CD: 2.7 ML/HR X 16 HRS?ED: 1.7 ML/UNIT X 2
     Route: 050
     Dates: start: 20190902, end: 20200711
  10. NEUPRO [Suspect]
     Active Substance: ROTIGOTINE
     Indication: PARKINSON^S DISEASE
     Route: 062
     Dates: start: 20190725, end: 20190725
  11. ROPINIROLE HYDROCHLORIDE. [Concomitant]
     Active Substance: ROPINIROLE HYDROCHLORIDE
     Indication: PARKINSON^S DISEASE
     Route: 048
     Dates: start: 20190728
  12. URAPIDIL [Concomitant]
     Active Substance: URAPIDIL
     Indication: PRODUCT USED FOR UNKNOWN INDICATION
     Route: 048
     Dates: start: 20190729
  13. ZOLPIDEM TARTRATE. [Concomitant]
     Active Substance: ZOLPIDEM TARTRATE
     Indication: INSOMNIA
     Dosage: PRN
     Route: 048
     Dates: start: 20200623
  14. DUODOPA [Suspect]
     Active Substance: CARBIDOPA\LEVODOPA
     Dosage: MD: 6.0 ML?CD: 2.2 ML/HR X 16 HRS?ED: 1.7 ML/UNIT X 2
     Route: 050
     Dates: start: 20190729, end: 20190805
  15. NEUPRO [Suspect]
     Active Substance: ROTIGOTINE
     Route: 062
     Dates: start: 20190725, end: 20190801
  16. NEUPRO [Suspect]
     Active Substance: ROTIGOTINE
     Route: 062
     Dates: start: 20200122, end: 20200714
  17. DOMPERIDONE [Concomitant]
     Active Substance: DOMPERIDONE
     Route: 048
     Dates: end: 20191017
  18. EPINASTINE HYDROCHLORIDE. [Concomitant]
     Active Substance: EPINASTINE HYDROCHLORIDE
     Indication: PRODUCT USED FOR UNKNOWN INDICATION
     Route: 048
  19. DUODOPA [Suspect]
     Active Substance: CARBIDOPA\LEVODOPA
     Indication: PARKINSON^S DISEASE
     Dosage: MD: 4.0 ML?CD: 1.6 ML/HR X 16 HRS
     Route: 050
     Dates: start: 20190724, end: 20190725
  20. ROPINIROLE HYDROCHLORIDE. [Concomitant]
     Active Substance: ROPINIROLE HYDROCHLORIDE
     Dosage: PROLONGED?RELEASE TABLET
     Route: 048
     Dates: start: 20190812, end: 20190814
  21. OCTOTIAMINE W/VIT B2/VIT B6/VIT B12 NOS [Concomitant]
     Indication: PRODUCT USED FOR UNKNOWN INDICATION
     Route: 048
     Dates: start: 20190726
  22. HEPARINOID [Concomitant]
     Active Substance: CHONDROITIN SULFATE (BOVINE)
     Indication: PROPHYLAXIS
  23. DUODOPA [Suspect]
     Active Substance: CARBIDOPA\LEVODOPA
     Dosage: MD: 6.0 ML,?CD: 2.0 ML/HR X 16 HRS?ED: 1.5 ML/UNIT X 2
     Route: 050
     Dates: start: 20190725, end: 20190725
  24. DUODOPA [Suspect]
     Active Substance: CARBIDOPA\LEVODOPA
     Dosage: MD: 6.0 ML?CD: 2.2 ML/HR X 16 HRS?ED: 1.7 ML/UNIT X 2
     Route: 050
     Dates: start: 20190806, end: 20190808
  25. DUODOPA [Suspect]
     Active Substance: CARBIDOPA\LEVODOPA
     Dosage: MD: 9.0 ML?CD: 2.2 ML/HR X 16 HRS?ED: 1.7 ML/UNIT X 2
     Route: 050
     Dates: start: 20190809, end: 20190822
  26. ROPINIROLE HYDROCHLORIDE. [Concomitant]
     Active Substance: ROPINIROLE HYDROCHLORIDE
     Dosage: PROLONGED?RELEASE TABLET
     Route: 048
     Dates: start: 20190730, end: 20190812
  27. CARBIDOPA HYDRATE AND LEVODOPA [Concomitant]
     Indication: PARKINSON^S DISEASE
     Route: 048
     Dates: start: 20200711, end: 20200713
  28. CARBIDOPA HYDRATE AND LEVODOPA [Concomitant]
     Route: 048
     Dates: start: 20200711, end: 20200713
  29. DUODOPA [Suspect]
     Active Substance: CARBIDOPA\LEVODOPA
     Dosage: MD: 9 ML?CD: 2.7 ML/HR X 16 HRS?ED: 1.7 ML/UNIT X 2
     Route: 050
     Dates: start: 20200713
  30. LEVODOPA/CARBIDOPA [Concomitant]
     Active Substance: CARBIDOPA\LEVODOPA
     Indication: PRODUCT USED FOR UNKNOWN INDICATION
     Route: 048
  31. ROPINIROLE HYDROCHLORIDE. [Concomitant]
     Active Substance: ROPINIROLE HYDROCHLORIDE
     Route: 062
     Dates: start: 20200715
  32. NEUPRO [Suspect]
     Active Substance: ROTIGOTINE
     Route: 062
     Dates: start: 20190801, end: 20200122
  33. ROPINIROLE HYDROCHLORIDE. [Concomitant]
     Active Substance: ROPINIROLE HYDROCHLORIDE
     Route: 048
     Dates: start: 20190729, end: 20190730

REACTIONS (19)
  - Stoma site discharge [Not Recovered/Not Resolved]
  - Flatulence [Unknown]
  - Erythema [Recovering/Resolving]
  - Stoma site hypergranulation [Recovering/Resolving]
  - Device occlusion [Unknown]
  - On and off phenomenon [Unknown]
  - Stoma site pain [Not Recovered/Not Resolved]
  - Medical device discomfort [Unknown]
  - Drug ineffective [Unknown]
  - Stoma site pruritus [Not Recovered/Not Resolved]
  - Stoma site erythema [Not Recovered/Not Resolved]
  - Abdominal pain [Recovered/Resolved]
  - Dermatitis contact [Recovering/Resolving]
  - Stoma site pain [Recovered/Resolved]
  - Stoma site hypergranulation [Recovered/Resolved]
  - Pain [Not Recovered/Not Resolved]
  - Constipation [Not Recovered/Not Resolved]
  - Abdominal pain [Unknown]
  - Diverticulitis [Recovered/Resolved]

NARRATIVE: CASE EVENT DATE: 2019
